FAERS Safety Report 9790307 (Version 2)
Quarter: 2014Q1

REPORT INFORMATION
  Report Type: Spontaneous
  Country: US (occurrence: US)
  Receive Date: 20131231
  Receipt Date: 20140204
  Transmission Date: 20141002
  Serious: Yes (Other)
  Sender: FDA-Public Use
  Company Number: US-SA-2013SA136141

PATIENT
  Age: 68 Year
  Sex: Female
  Weight: 125 kg

DRUGS (40)
  1. APIDRA SOLOSTAR [Suspect]
     Indication: TYPE 2 DIABETES MELLITUS
     Dosage: 8/12/12 UNITS
     Route: 058
  2. APIDRA SOLOSTAR [Suspect]
     Indication: TYPE 2 DIABETES MELLITUS
     Dosage: 8/12/12 UNITS
     Route: 058
  3. SOLOSTAR [Concomitant]
     Indication: TYPE 2 DIABETES MELLITUS
  4. SOLOSTAR [Concomitant]
     Indication: TYPE 2 DIABETES MELLITUS
  5. COLCHICINE [Concomitant]
  6. POTASSIUM CHLORIDE [Concomitant]
  7. LASIX [Concomitant]
  8. TERAZOL 7 [Concomitant]
  9. LASIX [Concomitant]
  10. PROCARDIA XL [Concomitant]
  11. FLUTICASONE PROPIONATE [Concomitant]
  12. ALL OTHER THERAPEUTIC PRODUCTS [Concomitant]
  13. LEVEMIR FLEXPEN [Concomitant]
  14. FUROSEMIDE [Concomitant]
  15. TESSALON [Concomitant]
  16. DUONEB [Concomitant]
  17. ACETAMINOPHEN W/OXYCODONE [Concomitant]
  18. PROTOPIC [Concomitant]
  19. ZOFRAN [Concomitant]
  20. BENTYL [Concomitant]
  21. VENTOLIN RESPIRATOR SOLUTION [Concomitant]
  22. NAPROXEN [Concomitant]
  23. BENADRYL [Concomitant]
  24. AMOXICILLIN [Concomitant]
  25. AMBIEN [Concomitant]
  26. NEXIUM [Concomitant]
  27. POTASSIUM CHLORIDE [Concomitant]
  28. METFORMIN [Concomitant]
  29. METFORMIN [Concomitant]
  30. ZETIA [Concomitant]
  31. AMLODIPINE BESILATE [Concomitant]
  32. ASPIRIN [Concomitant]
  33. CYMBALTA [Concomitant]
  34. COLACE [Concomitant]
  35. QUESTRAN [Concomitant]
  36. XIFAXAN [Concomitant]
  37. HYDRALAZINE [Concomitant]
  38. ALLOPURINOL [Concomitant]
  39. GABAPENTIN [Concomitant]
  40. DIOVAN [Concomitant]

REACTIONS (5)
  - Cardiac failure congestive [Not Recovered/Not Resolved]
  - Asthma [Not Recovered/Not Resolved]
  - Hepatic cirrhosis [Not Recovered/Not Resolved]
  - Pulmonary hypertension [Not Recovered/Not Resolved]
  - Sleep apnoea syndrome [Not Recovered/Not Resolved]
